FAERS Safety Report 5477313-8 (Version None)
Quarter: 2007Q4

REPORT INFORMATION
  Report Type: 
  Country: None (occurrence: None)
  Receive Date: 20071004
  Receipt Date: 20070925
  Transmission Date: 20080405
  Serious: Yes (Hospitalization)
  Sender: FDA-Public Use
  Company Number: FR-ASTRAZENECA-2007CG01355

PATIENT
  Age: 61 Year
  Sex: Female

DRUGS (5)
  1. CRESTOR [Suspect]
     Route: 048
     Dates: start: 20070201, end: 20070801
  2. FUCIDINE [Interacting]
     Indication: OSTEITIS
     Dates: start: 20070801
  3. OFLOCET [Concomitant]
     Indication: OSTEITIS
     Dates: start: 20070801
  4. INSULIN [Concomitant]
  5. GLUCOPHAGE [Concomitant]

REACTIONS (3)
  - BLOOD CREATINE PHOSPHOKINASE INCREASED [None]
  - DRUG INTERACTION [None]
  - MYOPATHY [None]
